FAERS Safety Report 7774794-1 (Version None)
Quarter: 2011Q3

REPORT INFORMATION
  Report Type: 
  Country: None (occurrence: None)
  Receive Date: 20110923
  Receipt Date: 20110920
  Transmission Date: 20111222
  Serious: No
  Sender: FDA-Public Use
  Company Number: US-PFIZER INC-2011199571

PATIENT
  Sex: Male

DRUGS (2)
  1. CHILDREN'S ADVIL [Suspect]
     Indication: PHARYNGITIS
     Dosage: UNK, ONE AND HALF TEASPOON, ONE DOSE
     Route: 048
     Dates: start: 20110825, end: 20110825
  2. CHILDREN'S ADVIL [Suspect]
     Indication: OROPHARYNGEAL PAIN

REACTIONS (3)
  - RASH ERYTHEMATOUS [None]
  - EYE SWELLING [None]
  - SWELLING FACE [None]
